FAERS Safety Report 4798857-8 (Version None)
Quarter: 2005Q4

REPORT INFORMATION
  Report Type: 
  Country: None (occurrence: None)
  Receive Date: 20051014
  Receipt Date: 20050815
  Transmission Date: 20060501
  Serious: Yes (Hospitalization)
  Sender: FDA-Public Use
  Company Number: JP-GLAXOSMITHKLINE-B0390774A

PATIENT
  Age: 72 Year
  Sex: Male
  Weight: 65 kg

DRUGS (24)
  1. VALTREX [Suspect]
     Indication: HERPES ZOSTER
     Dosage: 1000MG PER DAY
     Route: 048
     Dates: start: 20050813, end: 20050815
  2. ADALAT [Concomitant]
     Indication: HYPERTENSION
     Dosage: 80MG PER DAY
     Route: 048
  3. AMLODIPINE BESYLATE [Concomitant]
     Route: 048
  4. BLOPRESS [Concomitant]
     Indication: HYPERTENSION
     Dosage: 16MG PER DAY
     Route: 048
  5. SELOKEN [Concomitant]
     Indication: HYPERTENSION
     Dosage: 40MG PER DAY
     Route: 048
  6. UNKNOWN DRUG [Concomitant]
     Route: 065
  7. ALDOMET [Concomitant]
     Indication: HYPERTENSION
     Dosage: 750MG PER DAY
     Route: 048
  8. VERAPAMIL [Concomitant]
     Indication: HYPERTENSION
     Dosage: 80MG PER DAY
     Route: 065
  9. CARDENALIN [Concomitant]
     Indication: HYPERTENSION
     Dosage: 1MG PER DAY
     Route: 048
  10. NITOROL R [Concomitant]
     Indication: HYPERTENSION
     Dosage: 20MG PER DAY
     Route: 048
  11. ANCORON [Concomitant]
     Indication: HYPERTENSION
     Dosage: 150MG PER DAY
     Route: 048
  12. RIFADIN [Concomitant]
     Indication: PULMONARY TUBERCULOSIS
     Dosage: 450MG PER DAY
     Route: 048
  13. ISCOTIN [Concomitant]
     Indication: PULMONARY TUBERCULOSIS
     Dosage: 300MG PER DAY
     Route: 065
  14. ESANBUTOL [Concomitant]
     Indication: PULMONARY TUBERCULOSIS
     Dosage: 750MG PER DAY
     Route: 048
  15. ASPIRIN [Concomitant]
     Dosage: 100MG PER DAY
     Route: 048
  16. HARNAL [Concomitant]
     Dosage: .1MG PER DAY
     Route: 048
  17. CRAVIT [Concomitant]
     Dosage: 300MG PER DAY
     Route: 065
  18. PYDOXAL [Concomitant]
     Dosage: 30MG PER DAY
     Route: 065
  19. LASIX [Concomitant]
     Dosage: 40MG PER DAY
     Route: 065
  20. GASTER [Concomitant]
     Dosage: 20MG PER DAY
     Route: 065
  21. SELBEX [Concomitant]
     Dosage: 50MG PER DAY
     Route: 048
  22. WARFARIN [Concomitant]
     Route: 048
  23. CALONAL [Concomitant]
     Dosage: 400MG PER DAY
     Route: 065
  24. LENDORMIN [Concomitant]
     Dosage: .25MG PER DAY
     Route: 048

REACTIONS (10)
  - ANXIETY [None]
  - DELIRIUM [None]
  - DIFFICULTY IN WALKING [None]
  - DIZZINESS [None]
  - DYSARTHRIA [None]
  - IMPATIENCE [None]
  - MUSCULOSKELETAL STIFFNESS [None]
  - NERVOUS SYSTEM DISORDER [None]
  - NEUROLOGICAL SYMPTOM [None]
  - PSYCHIATRIC SYMPTOM [None]
